FAERS Safety Report 4398716-9 (Version None)
Quarter: 2004Q3

REPORT INFORMATION
  Report Type: 
  Country: None (occurrence: None)
  Receive Date: 20040712
  Receipt Date: 20040617
  Transmission Date: 20050211
  Serious: Yes (Other)
  Sender: FDA-Public Use
  Company Number: GBS040615119

PATIENT
  Age: 76 Year
  Sex: Female

DRUGS (3)
  1. GEMCITABINE HYDROCHLORIDE-IV (GEMCITABINE) [Suspect]
     Indication: NON-SMALL CELL LUNG CANCER
     Dosage: 1 G/M2
     Dates: start: 20040617
  2. LANSOPRAZOLE [Concomitant]
  3. CO-CODAMOL [Concomitant]

REACTIONS (1)
  - MYOCLONUS [None]
